FAERS Safety Report 10017457 (Version 1)
Quarter: 2014Q1

REPORT INFORMATION
  Report Type: Spontaneous
  Country: US (occurrence: US)
  Receive Date: 20140318
  Receipt Date: 20140318
  Transmission Date: 20141002
  Serious: No
  Sender: FDA-Public Use
  Company Number: US-PFIZER INC-2014072398

PATIENT
  Age: 56 Year
  Sex: Female
  Weight: 68.49 kg

DRUGS (20)
  1. LYRICA [Suspect]
     Dosage: 150 MG, 2X/DAY
     Route: 048
  2. LYRICA [Suspect]
     Dosage: 150 MG, 3X/DAY
     Route: 048
     Dates: start: 20131111
  3. MEDROL [Suspect]
     Dosage: 4 MG, AS DIRECTED
     Route: 048
  4. AVINZA [Suspect]
     Dosage: 90 MG, DAILY
     Route: 048
  5. AVINZA [Suspect]
     Dosage: 45 MG, 2X/DAY
     Route: 048
     Dates: start: 20131111
  6. AZITHROMYCIN [Suspect]
     Dosage: 250 MG TABLET, DAILY
     Route: 048
     Dates: start: 20130916
  7. LISINOPRIL [Suspect]
     Dosage: 10 MG, DAILY
     Route: 048
     Dates: start: 20130614
  8. VITAMIN D [Suspect]
     Dosage: 2000 IU, DAILY
     Route: 048
     Dates: start: 20130219
  9. VICODIN ES [Suspect]
     Dosage: 7.5-325 MG, 1 TABLET 4X/DAY PRN
     Route: 048
     Dates: start: 20131104
  10. KLONOPIN [Suspect]
     Dosage: 1 MG, 3X/DAY
     Route: 048
     Dates: start: 201311
  11. ACTONEL [Suspect]
     Dosage: 35 MG, ONCE A WEEK
     Route: 048
     Dates: start: 20130916
  12. CYMBALTA [Suspect]
     Dosage: 60 MG, BID
     Route: 048
     Dates: start: 20130807
  13. VENTOLIN [Suspect]
     Dosage: UNK, 1 INHAL INHAL 1 INHAL INHALATION Q4HP
     Dates: start: 20130716
  14. ABILIFY [Suspect]
     Dosage: 2 MG, DAILY
     Route: 048
     Dates: start: 20130521
  15. FLEXERIL [Suspect]
     Dosage: 5 MG, BID PRN
     Route: 048
     Dates: start: 20130521
  16. ADVAIR [Suspect]
     Dosage: 250-500 DISKUS, 1 INHALATON 2X/DAY
     Dates: start: 20130514
  17. NUVIGIL [Suspect]
     Dosage: 250 MG, DAILY
     Route: 048
  18. CALCIUM [Suspect]
     Dosage: 500 MG, DAILY
     Route: 048
     Dates: start: 20130219
  19. ANTIVERT [Suspect]
     Dosage: 25 MG, PRN
     Route: 048
     Dates: start: 20130219
  20. ZYRTEC [Suspect]
     Dosage: 10 MG, DAILY
     Route: 048
     Dates: start: 20130219

REACTIONS (10)
  - Diarrhoea [Unknown]
  - Vomiting [Unknown]
  - Nausea [Unknown]
  - Malaise [Unknown]
  - Asthenia [Unknown]
  - Flushing [Unknown]
  - Dizziness [Unknown]
  - Activities of daily living impaired [Unknown]
  - Abdominal discomfort [Unknown]
  - Depressed mood [Unknown]
